FAERS Safety Report 5528119-2 (Version None)
Quarter: 2007Q4

REPORT INFORMATION
  Report Type: 
  Country: None (occurrence: None)
  Receive Date: 20071126
  Receipt Date: 20071126
  Transmission Date: 20080405
  Serious: Yes (Life-Threatening, Other)
  Sender: FDA-Public Use
  Company Number: None

PATIENT
  Sex: Male
  Weight: 92.9874 kg

DRUGS (1)
  1. CIPROFLOXACIN [Suspect]
     Indication: INFECTION PROPHYLAXIS
     Dosage: 500 MG TWICE DAILY PO
     Route: 048
     Dates: start: 20070503, end: 20070505

REACTIONS (5)
  - DEPRESSION [None]
  - DIPLOPIA [None]
  - DYSPNOEA [None]
  - URTICARIA [None]
  - VERTIGO [None]
